FAERS Safety Report 6425265-6 (Version None)
Quarter: 2009Q4

REPORT INFORMATION
  Report Type: 
  Country: None (occurrence: None)
  Receive Date: 20091103
  Receipt Date: 20091028
  Transmission Date: 20100525
  Serious: Yes (Other)
  Sender: FDA-Public Use
  Company Number: DE-AMGEN-UK371467

PATIENT
  Sex: Female

DRUGS (3)
  1. NEULASTA [Suspect]
     Indication: CHEMOTHERAPY
     Route: 065
  2. NEUPOGEN [Suspect]
     Indication: CHEMOTHERAPY
     Route: 065
  3. TAXOTERE [Concomitant]
     Route: 065

REACTIONS (4)
  - BONE PAIN [None]
  - GASTROINTESTINAL DISORDER [None]
  - PYREXIA [None]
  - WHITE BLOOD CELL COUNT ABNORMAL [None]
